FAERS Safety Report 23440394 (Version 3)
Quarter: 2024Q1

REPORT INFORMATION
  Report Type: Spontaneous
  Country: PT (occurrence: PT)
  Receive Date: 20240124
  Receipt Date: 20240209
  Transmission Date: 20240410
  Serious: Yes (Hospitalization, Other)
  Sender: FDA-Public Use
  Company Number: PT-OPELLA-2024OHG000850

PATIENT
  Age: 14 Year
  Sex: Female

DRUGS (3)
  1. ACETAMINOPHEN [Suspect]
     Active Substance: ACETAMINOPHEN
     Indication: Pain
     Dosage: UNK UNK, ONCE A DAY,IN THERAPEUTIC DOSES/RESUMED
     Route: 048
  2. ACETAMINOPHEN [Suspect]
     Active Substance: ACETAMINOPHEN
     Indication: Upper respiratory tract infection
     Dosage: UNK,RE-EXPOSURE TO PARACETAMOL FOR PAIN FOLLOWING THE BIOPSY/RESUMED
     Route: 065
  3. PREDNISOLONE [Suspect]
     Active Substance: PREDNISOLONE
     Indication: Product used for unknown indication
     Dosage: UNK
     Route: 065

REACTIONS (14)
  - Tubulointerstitial nephritis [Recovered/Resolved]
  - Acute kidney injury [Recovered/Resolved]
  - Vomiting [Recovered/Resolved]
  - Pyrexia [Recovered/Resolved]
  - Urticaria [Recovered/Resolved]
  - Drug hypersensitivity [Recovered/Resolved]
  - Leukocyturia [Recovered/Resolved]
  - Renal impairment [Recovered/Resolved]
  - Abnormal loss of weight [Recovered/Resolved]
  - Eosinophilia [Recovered/Resolved]
  - Polyuria [Recovered/Resolved]
  - Off label use [Unknown]
  - Weight decreased [Recovered/Resolved]
  - Product use in unapproved indication [Unknown]
